FAERS Safety Report 21784096 (Version 1)
Quarter: 2022Q4

REPORT INFORMATION
  Report Type: Spontaneous
  Country: US (occurrence: None)
  Receive Date: 20221226
  Receipt Date: 20221226
  Transmission Date: 20230113
  Serious: Yes (Hospitalization, Disabling, Other)
  Sender: FDA-Public Use
  Company Number: None

PATIENT
  Age: 40 Year
  Sex: Male
  Weight: 85 kg

DRUGS (3)
  1. MOXIFLOXACIN [Suspect]
     Active Substance: MOXIFLOXACIN
     Indication: Sinusitis
     Dosage: FREQUENCY : DAILY;?
     Route: 048
     Dates: start: 20220815, end: 20221223
  2. MAGNESIUM [Concomitant]
     Active Substance: MAGNESIUM
  3. OMEGA 3 [Concomitant]
     Active Substance: CAPSAICIN

REACTIONS (11)
  - Arthralgia [None]
  - Arthralgia [None]
  - Back pain [None]
  - Burning sensation [None]
  - Muscle twitching [None]
  - Arthralgia [None]
  - Cartilage injury [None]
  - Tendon disorder [None]
  - Gait inability [None]
  - Pain [None]
  - Food allergy [None]

NARRATIVE: CASE EVENT DATE: 20220815
